FAERS Safety Report 10431401 (Version 2)
Quarter: 2015Q1

REPORT INFORMATION
  Report Type: Spontaneous
  Country: US (occurrence: US)
  Receive Date: 20140904
  Receipt Date: 20150114
  Transmission Date: 20150720
  Serious: Yes (Disabling, Other)
  Sender: FDA-Public Use
  Company Number: US-GLAXOSMITHKLINE-A1087590A

PATIENT
  Sex: Female

DRUGS (1)
  1. ADVAIR HFA [Suspect]
     Active Substance: FLUTICASONE PROPIONATE\SALMETEROL XINAFOATE
     Indication: ASTHMA
     Dosage: 100/50 MCG. UNKNOWN DOSING.
     Route: 065
     Dates: start: 2007

REACTIONS (4)
  - Arthritis [Unknown]
  - Dyspnoea [Unknown]
  - Disability [Unknown]
  - Hypertension [Unknown]
